FAERS Safety Report 14198103 (Version 2)
Quarter: 2018Q1

REPORT INFORMATION
  Report Type: Spontaneous
  Country: US (occurrence: US)
  Receive Date: 20171117
  Receipt Date: 20180212
  Transmission Date: 20180508
  Serious: Yes (Other)
  Sender: FDA-Public Use
  Company Number: US-SUN PHARMACEUTICAL INDUSTRIES LTD-2017US-154932

PATIENT
  Age: 43 Year
  Sex: Female

DRUGS (4)
  1. LENALIDOMIDE [Interacting]
     Active Substance: LENALIDOMIDE
     Indication: NEUROPATHY PERIPHERAL
     Dosage: UNK
     Route: 065
  2. IXAZOMIB [Interacting]
     Active Substance: IXAZOMIB
     Indication: NEUROPATHY PERIPHERAL
     Dosage: UNK
     Route: 065
  3. DEXAMETHASONE. [Suspect]
     Active Substance: DEXAMETHASONE
     Indication: NEUROPATHY PERIPHERAL
     Dosage: UNK
     Route: 065
  4. BORTEZOMIB [Interacting]
     Active Substance: BORTEZOMIB
     Indication: NEUROPATHY PERIPHERAL
     Dosage: UNK
     Route: 065

REACTIONS (3)
  - Myocarditis [Recovered/Resolved]
  - Drug interaction [Unknown]
  - Cardiotoxicity [Recovered/Resolved]
